FAERS Safety Report 17248326 (Version 2)
Quarter: 2020Q1

REPORT INFORMATION
  Report Type: Report from Study
  Country: US (occurrence: US)
  Receive Date: 20200108
  Receipt Date: 20200113
  Transmission Date: 20200409
  Serious: Yes (Hospitalization, Other)
  Sender: FDA-Public Use
  Company Number: US-BRISTOL-MYERS SQUIBB COMPANY-BMS-2019-121180

PATIENT
  Age: 21 Year
  Sex: Male
  Weight: 102.6 kg

DRUGS (4)
  1. NIVOLUMAB [Suspect]
     Active Substance: NIVOLUMAB
     Indication: EWING^S SARCOMA
     Dosage: 1 MILLIGRAM/KILOGRAM
     Route: 042
     Dates: start: 20191104
  2. IPILIMUMAB [Suspect]
     Active Substance: IPILIMUMAB
     Indication: EWING^S SARCOMA
     Dosage: 3 MILLIGRAM/KILOGRAM
     Route: 042
     Dates: start: 20191104
  3. IPILIMUMAB [Suspect]
     Active Substance: IPILIMUMAB
     Indication: PRODUCT USED FOR UNKNOWN INDICATION
     Dosage: 307.8 MILLIGRAM
     Route: 042
     Dates: start: 20191125, end: 20191125
  4. NIVOLUMAB [Suspect]
     Active Substance: NIVOLUMAB
     Indication: PRODUCT USED FOR UNKNOWN INDICATION
     Dosage: 102.6 MILLIGRAM
     Route: 042
     Dates: start: 20191125, end: 20191125

REACTIONS (3)
  - Autoimmune thyroiditis [Unknown]
  - Anorectal infection [Recovered/Resolved]
  - Autoimmune hepatitis [Unknown]

NARRATIVE: CASE EVENT DATE: 20191202
